FAERS Safety Report 13739075 (Version 1)
Quarter: 2017Q3

REPORT INFORMATION
  Report Type: Spontaneous
  Country: US (occurrence: US)
  Receive Date: 20170710
  Receipt Date: 20170710
  Transmission Date: 20171127
  Serious: Yes (Other)
  Sender: FDA-Public Use
  Company Number: US-SAOL THERAPEUTICS-0700805142

PATIENT
  Sex: Female

DRUGS (5)
  1. BACLOFEN. [Suspect]
     Active Substance: BACLOFEN
     Indication: PAIN
     Dosage: 79.10 MCG/DAY; SEE B5
     Route: 037
  2. BACLOFEN. [Suspect]
     Active Substance: BACLOFEN
     Indication: POST LAMINECTOMY SYNDROME
  3. MORPHINE [Suspect]
     Active Substance: MORPHINE
     Dosage: 15.820 MG/DAY; SEE B5
     Route: 037
  4. BUPIVACAINE. [Suspect]
     Active Substance: BUPIVACAINE
     Indication: POST LAMINECTOMY SYNDROME
     Dosage: 15.820MG \DAY
     Route: 037
  5. FENTANYL. [Suspect]
     Active Substance: FENTANYL
     Indication: POST LAMINECTOMY SYNDROME
     Route: 037

REACTIONS (10)
  - Muscle spasms [Unknown]
  - Implant site infection [Unknown]
  - Implant site warmth [Unknown]
  - Neck pain [Unknown]
  - Pain [Unknown]
  - Complication associated with device [Not Recovered/Not Resolved]
  - Implant site erythema [Unknown]
  - Procedural pain [Unknown]
  - Therapy non-responder [Unknown]
  - Off label use [Unknown]
